FAERS Safety Report 10039867 (Version 2)
Quarter: 2014Q1

REPORT INFORMATION
  Report Type: Spontaneous
  Country: JP (occurrence: JP)
  Receive Date: 20140326
  Receipt Date: 20140326
  Transmission Date: 20141002
  Serious: Yes (Hospitalization)
  Sender: FDA-Public Use
  Company Number: JP-JNJFOC-20140304037

PATIENT
  Age: 76 Year
  Sex: Male
  Weight: 63.04 kg

DRUGS (10)
  1. XARELTO [Suspect]
     Indication: ATRIAL FIBRILLATION
     Route: 048
     Dates: start: 20131125, end: 20131227
  2. XARELTO [Suspect]
     Indication: THROMBOSIS PROPHYLAXIS
     Route: 048
     Dates: start: 20131125, end: 20131227
  3. WARFARIN [Interacting]
     Indication: PRODUCT USED FOR UNKNOWN INDICATION
     Route: 048
     Dates: start: 20131227, end: 20140115
  4. WARFARIN [Interacting]
     Indication: PRODUCT USED FOR UNKNOWN INDICATION
     Route: 048
     Dates: start: 20040403, end: 20131125
  5. PANCRELIPASE [Concomitant]
     Route: 048
     Dates: start: 20121112
  6. DIGOXIN [Concomitant]
     Route: 048
     Dates: start: 20040403
  7. MAINTATE [Concomitant]
     Route: 048
     Dates: start: 20040403
  8. REZALTAS [Concomitant]
     Route: 048
     Dates: start: 20101220
  9. URSO [Concomitant]
     Route: 048
     Dates: start: 20120314
  10. LAC-B [Concomitant]
     Route: 048
     Dates: start: 20120314

REACTIONS (4)
  - Gastric mucosal lesion [Recovered/Resolved]
  - Faeces discoloured [Recovered/Resolved]
  - Epigastric discomfort [Recovered/Resolved]
  - Drug interaction [Unknown]
